FAERS Safety Report 6712659-4 (Version None)
Quarter: 2010Q2

REPORT INFORMATION
  Report Type: 
  Country: None (occurrence: None)
  Receive Date: 20100505
  Receipt Date: 20100505
  Transmission Date: 20101027
  Serious: Yes (Hospitalization)
  Sender: FDA-Public Use
  Company Number: None

PATIENT
  Age: 83 Year
  Sex: Female
  Weight: 50 kg

DRUGS (8)
  1. CELEXA [Suspect]
     Indication: DEPRESSION
     Dates: end: 20091001
  2. LISINOPRIL [Concomitant]
  3. LEVOXYL [Concomitant]
  4. BETAPACE [Concomitant]
  5. DARVOCET [Concomitant]
  6. ALPHAGAN [Concomitant]
  7. PREDNISONE [Concomitant]
  8. VYTORIN [Concomitant]

REACTIONS (1)
  - HYPONATRAEMIA [None]
